FAERS Safety Report 4617218-5 (Version None)
Quarter: 2005Q1

REPORT INFORMATION
  Report Type: 
  Country: None (occurrence: None)
  Receive Date: 20050323
  Receipt Date: 20041207
  Transmission Date: 20050727
  Serious: Yes (Other)
  Sender: FDA-Public Use
  Company Number: PHBS2004JP16604

PATIENT
  Age: 71 Year
  Sex: Male
  Weight: 70 kg

DRUGS (18)
  1. LIPITOR [Suspect]
     Dosage: 10 MG/DAY
     Route: 048
     Dates: start: 20031029, end: 20031116
  2. LOCHOL [Suspect]
     Indication: HYPERLIPIDAEMIA
     Dosage: 30 MG/DAY
     Route: 048
     Dates: start: 20031125, end: 20031126
  3. LOCHOL [Suspect]
     Dosage: 60 MG/DAY
     Route: 048
     Dates: start: 20031015, end: 20031028
  4. LOCHOL [Suspect]
     Dosage: 60 MG/DAY
     Route: 048
     Dates: start: 20031117, end: 20031124
  5. NEORAL [Concomitant]
     Dosage: UNK, UNK
     Route: 048
     Dates: start: 20031112
  6. NEORAL [Concomitant]
     Dosage: 150 MG/DAY
     Route: 048
  7. RENIVACE [Concomitant]
     Dosage: UNK, UNK
     Route: 048
     Dates: start: 20031015
  8. RENIVACE [Concomitant]
     Dosage: 5 MG/DAY
     Route: 048
  9. LASIX [Concomitant]
     Dosage: UNK, UNK
     Route: 048
     Dates: start: 20031015
  10. LASIX [Concomitant]
     Dosage: 160 MG/DAY
     Route: 048
  11. LASIX [Concomitant]
     Dosage: 40 MG/DAY
     Route: 048
  12. PREDONINE [Concomitant]
     Dosage: UNK, UNK
     Route: 048
     Dates: start: 20031020
  13. PREDONINE [Concomitant]
     Dosage: 30 MG/DAY
     Route: 048
  14. COMELIAN [Concomitant]
     Dosage: UNK, UNK
     Route: 048
     Dates: start: 20031022
  15. NORVASC [Concomitant]
     Dosage: 5 MG/DAY
     Route: 048
     Dates: start: 20031029, end: 20040216
  16. ALDACTONE [Concomitant]
     Dosage: UNK, UNK
     Route: 048
     Dates: start: 20031204
  17. ALDACTONE [Concomitant]
     Dosage: 50 MG/DAY
     Route: 048
  18. FLUITRAN [Concomitant]
     Dosage: 2 MG/DAY
     Route: 048
     Dates: start: 20031208

REACTIONS (9)
  - ALANINE AMINOTRANSFERASE INCREASED [None]
  - ASPARTATE AMINOTRANSFERASE INCREASED [None]
  - BLOOD ALKALINE PHOSPHATASE INCREASED [None]
  - BLOOD CREATINE PHOSPHOKINASE INCREASED [None]
  - CONVULSION [None]
  - GAMMA-GLUTAMYLTRANSFERASE INCREASED [None]
  - LOSS OF CONSCIOUSNESS [None]
  - MUSCLE RIGIDITY [None]
  - RHABDOMYOLYSIS [None]
